FAERS Safety Report 4479626-5 (Version None)
Quarter: 2004Q4

REPORT INFORMATION
  Report Type: 
  Country: None (occurrence: None)
  Receive Date: 20041020
  Receipt Date: 20000517
  Transmission Date: 20050328
  Serious: Yes (Hospitalization, Disabling)
  Sender: FDA-Public Use
  Company Number: US-MERCK-00051950

PATIENT
  Age: 58 Year
  Sex: Female
  Weight: 63 kg

DRUGS (8)
  1. VIOXX [Suspect]
     Indication: ARTHRALGIA
     Route: 048
     Dates: start: 20000401, end: 20000413
  2. VIOXX [Suspect]
     Indication: BURSITIS
     Route: 048
     Dates: start: 20000401, end: 20000413
  3. HYDRODIURIL [Concomitant]
     Indication: HYPERTENSION
     Route: 048
     Dates: start: 19950101
  4. ACETAMINOPHEN [Concomitant]
     Route: 065
  5. CLARITIN [Concomitant]
     Route: 065
  6. VITAMINS (UNSPECIFIED) [Concomitant]
     Route: 065
  7. CALCIUM (UNSPECIFIED) [Concomitant]
     Route: 065
  8. ZOCOR [Suspect]
     Indication: HYPERLIPIDAEMIA
     Route: 048
     Dates: start: 20011129, end: 20020219

REACTIONS (47)
  - ANXIETY [None]
  - ASTHENIA [None]
  - BALANCE DISORDER [None]
  - BLOOD CREATINE PHOSPHOKINASE INCREASED [None]
  - BRAIN STEM INFARCTION [None]
  - BURSITIS [None]
  - CEREBELLAR INFARCTION [None]
  - CEREBROVASCULAR ACCIDENT [None]
  - CONDITION AGGRAVATED [None]
  - CRYING [None]
  - DEATH OF PARENT [None]
  - DERMATITIS [None]
  - DERMATOMYOSITIS [None]
  - DIFFICULTY IN WALKING [None]
  - DRUG EFFECT DECREASED [None]
  - ERYTHEMA [None]
  - FACE OEDEMA [None]
  - FALL [None]
  - FATIGUE [None]
  - FEELING DRUNK [None]
  - HAEMATURIA [None]
  - HEADACHE [None]
  - HYPERHIDROSIS [None]
  - HYPERLIPIDAEMIA [None]
  - HYPERPLASIA [None]
  - HYPERTENSION [None]
  - IMPATIENCE [None]
  - INSOMNIA [None]
  - INTRACRANIAL ANEURYSM [None]
  - LABYRINTHITIS [None]
  - LACUNAR INFARCTION [None]
  - LIPOMA [None]
  - MITOCHONDRIAL MYOPATHY [None]
  - MYALGIA [None]
  - MYOPATHY [None]
  - OSTEOARTHRITIS [None]
  - PAIN [None]
  - PAIN IN EXTREMITY [None]
  - PARAESTHESIA [None]
  - PHARYNGITIS [None]
  - PHOTOSENSITIVE RASH [None]
  - RESTLESS LEGS SYNDROME [None]
  - SKIN LESION [None]
  - SYSTEMIC LUPUS ERYTHEMATOSUS [None]
  - TENDONITIS [None]
  - VESTIBULAR DISORDER [None]
  - VOMITING [None]
